FAERS Safety Report 19035294 (Version 1)
Quarter: 2021Q1

REPORT INFORMATION
  Report Type: Other
  Country: US (occurrence: US)
  Receive Date: 20210320
  Receipt Date: 20210320
  Transmission Date: 20210420
  Serious: No
  Sender: FDA-Public Use
  Company Number: US-ACORDA-ACO_167484_2021

PATIENT
  Age: 78 Year
  Sex: Male

DRUGS (2)
  1. INBRIJA [Suspect]
     Active Substance: LEVODOPA
     Indication: ON AND OFF PHENOMENON
  2. INBRIJA [Suspect]
     Active Substance: LEVODOPA
     Indication: PARKINSON^S DISEASE
     Dosage: 2 CAPSULES, PRN (NOT TO EXCEED 5 DOSES A DAY)

REACTIONS (8)
  - Cough [Unknown]
  - Condition aggravated [Unknown]
  - Parkinson^s disease [Unknown]
  - Oral pain [Unknown]
  - Speech disorder [Unknown]
  - Product residue present [Unknown]
  - Oral mucosal eruption [Unknown]
  - Pain [Unknown]

NARRATIVE: CASE EVENT DATE: 20210108
